FAERS Safety Report 5521182-4 (Version None)
Quarter: 2007Q4

REPORT INFORMATION
  Report Type: 
  Country: None (occurrence: None)
  Receive Date: 20071119
  Receipt Date: 20071109
  Transmission Date: 20080405
  Serious: Yes (Other)
  Sender: FDA-Public Use
  Company Number: FR-ELI_LILLY_AND_COMPANY-FR200711002471

PATIENT
  Age: 73 Year
  Sex: Female

DRUGS (1)
  1. FORTEO [Suspect]
     Indication: OSTEOPOROSIS
     Dosage: 20 UG, DAILY (1/D)
     Route: 058
     Dates: start: 20070305, end: 20071026

REACTIONS (6)
  - BONE DISORDER [None]
  - BONE METABOLISM DISORDER [None]
  - BONE PAIN [None]
  - CALCINOSIS [None]
  - SCOLIOSIS [None]
  - SPINAL FRACTURE [None]
